FAERS Safety Report 7468286-7 (Version None)
Quarter: 2011Q2

REPORT INFORMATION
  Report Type: 
  Country: None (occurrence: None)
  Receive Date: 20110509
  Receipt Date: 20110426
  Transmission Date: 20111010
  Serious: Yes (Other)
  Sender: FDA-Public Use
  Company Number: US-CELGENEUS-163-21880-11043358

PATIENT
  Sex: Male
  Weight: 83.99 kg

DRUGS (26)
  1. AMBIEN [Concomitant]
     Route: 065
  2. ECHINACEA [Concomitant]
     Route: 065
  3. VITAMIN C [Concomitant]
     Route: 065
  4. ZINC [Concomitant]
     Route: 065
  5. COQ10 [Concomitant]
     Route: 065
  6. GRAPE SEED [Concomitant]
     Route: 065
  7. L-CARNITINE [Concomitant]
     Route: 065
  8. ALPHA LIPOIC ACID [Concomitant]
     Route: 065
  9. MILK THISTLE [Concomitant]
     Route: 065
  10. LISINOPRIL [Concomitant]
     Route: 065
  11. MAGNESIUM [Concomitant]
     Route: 065
  12. PREDNISONE [Concomitant]
     Route: 065
  13. VITAMIN B COMPLEX CAP [Concomitant]
     Route: 065
  14. VITAMIN D [Concomitant]
     Route: 065
  15. ASMANEX TWISTHALER [Concomitant]
     Route: 065
  16. ASPIRIN [Concomitant]
     Route: 065
  17. GLUCOSAMINE [Concomitant]
     Route: 065
  18. TRIMETHOPRIM + SULFAMETHOXAZOLE [Concomitant]
     Route: 065
  19. FISH OIL [Concomitant]
     Route: 065
  20. SINGULAIR [Concomitant]
     Route: 065
  21. LEVITRA [Concomitant]
     Route: 065
  22. VITAMIN E [Concomitant]
     Route: 065
  23. REVLIMID [Suspect]
     Indication: MULTIPLE MYELOMA
     Dosage: 15 MILLIGRAM
     Route: 048
     Dates: start: 20091001
  24. MULTI-VITAMINS [Concomitant]
     Route: 065
  25. PRIMROSE OIL [Concomitant]
     Route: 065
  26. ZOMETA [Concomitant]
     Route: 065

REACTIONS (2)
  - LUNG INFECTION [None]
  - ASTHMA [None]
